FAERS Safety Report 25242405 (Version 1)
Quarter: 2025Q2

REPORT INFORMATION
  Report Type: Spontaneous
  Country: US (occurrence: US)
  Receive Date: 20250427
  Receipt Date: 20250427
  Transmission Date: 20250717
  Serious: No
  Sender: INNOGENIX, LLC
  Company Number: US-Innogenix, LLC-2175644

PATIENT

DRUGS (4)
  1. METRONIDAZOLE [Suspect]
     Active Substance: METRONIDAZOLE
     Indication: Product used for unknown indication
  2. NITROFURANTOIN [Suspect]
     Active Substance: NITROFURANTOIN
  3. NABUMETONE [Concomitant]
     Active Substance: NABUMETONE
  4. BUSPIRONE [Concomitant]
     Active Substance: BUSPIRONE HYDROCHLORIDE

REACTIONS (3)
  - Asthenia [Unknown]
  - Dizziness [Unknown]
  - Nausea [Unknown]
